FAERS Safety Report 25028774 (Version 1)
Quarter: 2025Q1

REPORT INFORMATION
  Report Type: Spontaneous
  Country: SE (occurrence: SE)
  Receive Date: 20250302
  Receipt Date: 20250302
  Transmission Date: 20250409
  Serious: Yes (Other)
  Sender: JOHNSON AND JOHNSON
  Company Number: None

PATIENT
  Age: 70 Year
  Sex: Female
  Weight: 58 kg

DRUGS (16)
  1. XARELTO [Suspect]
     Active Substance: RIVAROXABAN
     Indication: Atrial fibrillation
     Dosage: 20 MG
     Route: 048
     Dates: start: 20210116, end: 20250119
  2. XARELTO [Suspect]
     Active Substance: RIVAROXABAN
     Indication: Prophylaxis
  3. EMADINE [Concomitant]
     Active Substance: EMEDASTINE DIFUMARATE
     Indication: Product used for unknown indication
     Dates: start: 20170605
  4. Oculentum simplex apl [Concomitant]
     Indication: Product used for unknown indication
     Dates: start: 20160428
  5. ACETAMINOPHEN [Concomitant]
     Active Substance: ACETAMINOPHEN
     Indication: Product used for unknown indication
     Dates: start: 20161003
  6. BISOPROLOL FUMARATE [Concomitant]
     Active Substance: BISOPROLOL FUMARATE
     Indication: Product used for unknown indication
     Dates: start: 20231117
  7. ALVESCO [Concomitant]
     Active Substance: CICLESONIDE
     Indication: Product used for unknown indication
     Dates: start: 20240412
  8. ACETYLCYSTEINE [Concomitant]
     Active Substance: ACETYLCYSTEINE
     Indication: Product used for unknown indication
     Dates: start: 20181214
  9. CREON [Concomitant]
     Active Substance: PANCRELIPASE AMYLASE\PANCRELIPASE LIPASE\PANCRELIPASE PROTEASE
     Indication: Product used for unknown indication
     Dates: start: 20160428
  10. ALBUTEROL SULFATE [Concomitant]
     Active Substance: ALBUTEROL SULFATE
     Indication: Product used for unknown indication
     Dates: start: 20160428
  11. VAGIFEM [Concomitant]
     Active Substance: ESTRADIOL
     Indication: Product used for unknown indication
     Dates: start: 20181214
  12. EBASTINE [Concomitant]
     Active Substance: EBASTINE
     Indication: Product used for unknown indication
     Dates: start: 20160428
  13. MOMETASONE [Concomitant]
     Active Substance: MOMETASONE
     Indication: Product used for unknown indication
     Dates: start: 20211221
  14. Terracortril med polymyxin b [Concomitant]
     Indication: Product used for unknown indication
     Dates: start: 20160428
  15. CREON [Concomitant]
     Active Substance: PANCRELIPASE AMYLASE\PANCRELIPASE LIPASE\PANCRELIPASE PROTEASE
     Indication: Product used for unknown indication
     Dates: start: 20231204
  16. INNOVAIR [Concomitant]
     Active Substance: BECLOMETHASONE DIPROPIONATE\FORMOTEROL
     Indication: Product used for unknown indication
     Dates: start: 20231215

REACTIONS (3)
  - Swelling face [Recovered/Resolved]
  - Product substitution issue [Recovered/Resolved]
  - Reaction to excipient [Recovered/Resolved]

NARRATIVE: CASE EVENT DATE: 20241129
